FAERS Safety Report 8286293-1 (Version None)
Quarter: 2012Q1

REPORT INFORMATION
  Report Type: 
  Country: None (occurrence: None)
  Receive Date: 20120314
  Receipt Date: 20100923
  Transmission Date: 20120608
  Serious: No
  Sender: FDA-Public Use
  Company Number: PHHY2010US63344

PATIENT
  Sex: Female

DRUGS (1)
  1. FANAPT [Suspect]

REACTIONS (1)
  - DRUG SCREEN POSITIVE [None]
